FAERS Safety Report 4585541-9 (Version None)
Quarter: 2005Q1

REPORT INFORMATION
  Report Type: 
  Country: None (occurrence: None)
  Receive Date: 20050217
  Receipt Date: 20050207
  Transmission Date: 20050727
  Serious: Yes (Other)
  Sender: FDA-Public Use
  Company Number: US-NOVOPROD-242133

PATIENT
  Age: 58 Year
  Sex: Male

DRUGS (1)
  1. NOVOLIN R [Suspect]
     Indication: DIABETES MELLITUS INSULIN-DEPENDENT
     Dosage: 50 IU, SINGLE IN A.M.
     Route: 058
     Dates: start: 20041202, end: 20041202

REACTIONS (6)
  - BLOOD GLUCOSE INCREASED [None]
  - CHEST PAIN [None]
  - DIZZINESS [None]
  - DYSPNOEA [None]
  - MEDICATION ERROR [None]
  - NAUSEA [None]
